FAERS Safety Report 7800581-1 (Version None)
Quarter: 2011Q4

REPORT INFORMATION
  Report Type: 
  Country: None (occurrence: None)
  Receive Date: 20111006
  Receipt Date: 20110829
  Transmission Date: 20120403
  Serious: Yes (Death)
  Sender: FDA-Public Use
  Company Number: DE-ACTELION-A-US2011-54970

PATIENT

DRUGS (2)
  1. VENTAVIS [Suspect]
     Indication: PRODUCT USED FOR UNKNOWN INDICATION
     Dosage: 5 ?G, 5XDAY
     Route: 055
     Dates: start: 20110617
  2. TRACLEER [Concomitant]
     Indication: PULMONARY ARTERIAL HYPERTENSION

REACTIONS (1)
  - DEATH [None]
